FAERS Safety Report 11859507 (Version 1)
Quarter: 2015Q4

REPORT INFORMATION
  Report Type: Spontaneous
  Country: JP (occurrence: JP)
  Receive Date: 20151221
  Receipt Date: 20151221
  Transmission Date: 20160305
  Serious: Yes (Death, Other)
  Sender: FDA-Public Use
  Company Number: JP-GILEAD-2015-0183498

PATIENT
  Age: 87 Year
  Sex: Male
  Weight: 60 kg

DRUGS (5)
  1. SOVALDI [Suspect]
     Active Substance: SOFOSBUVIR
     Indication: HEPATITIS C
     Dosage: 400 MG, UNK
     Route: 048
     Dates: start: 20150810, end: 20151030
  2. FAMOTIDINE. [Concomitant]
     Active Substance: FAMOTIDINE
     Dosage: 50 MG, UNK
     Route: 048
     Dates: end: 20151030
  3. COPEGUS [Concomitant]
     Active Substance: RIBAVIRIN
     Indication: HEPATITIS C
     Dosage: 600 MG, UNK
     Route: 048
     Dates: start: 20150810, end: 20151030
  4. ALINAMIN-F                         /00257802/ [Concomitant]
     Dosage: 75 MG, UNK
     Route: 048
     Dates: end: 20151030
  5. NEUMETHYCOLE [Concomitant]
     Dosage: 300 MG, UNK
     Route: 048
     Dates: end: 20151030

REACTIONS (10)
  - Lung disorder [Fatal]
  - Dyslalia [Unknown]
  - Somnolence [Unknown]
  - Hypercapnia [Fatal]
  - Decreased appetite [Unknown]
  - Cerebral infarction [Unknown]
  - Hemiparesis [Unknown]
  - Nasopharyngitis [Unknown]
  - Respiratory failure [Fatal]
  - Restlessness [Unknown]

NARRATIVE: CASE EVENT DATE: 201510
